FAERS Safety Report 18683762 (Version 2)
Quarter: 2021Q3

REPORT INFORMATION
  Report Type: Spontaneous
  Country: US (occurrence: US)
  Receive Date: 20201230
  Receipt Date: 20210713
  Transmission Date: 20211014
  Serious: Yes (Hospitalization, Other)
  Sender: FDA-Public Use
  Company Number: US-PFIZER INC-2020511591

PATIENT
  Age: 59 Year
  Sex: Female

DRUGS (10)
  1. PREMARIN [Suspect]
     Active Substance: ESTROGENS, CONJUGATED
     Dosage: 1.25 MG
  2. PREMARIN [Concomitant]
     Active Substance: ESTROGENS, CONJUGATED
     Dosage: UNK
  3. PREMARIN [Suspect]
     Active Substance: ESTROGENS, CONJUGATED
     Indication: MENOPAUSE
     Dosage: 0.625 MG, 1X/DAY (AT NIGHT)
     Route: 048
     Dates: start: 2009
  4. PREMARIN [Suspect]
     Active Substance: ESTROGENS, CONJUGATED
     Indication: OVARIAN DISORDER
     Dosage: UNK, ALTERNATE DAY (EVERY OTHER DAY)
  5. CYMBALTA [Concomitant]
     Active Substance: DULOXETINE HYDROCHLORIDE
     Indication: DEPRESSION
     Dosage: 60 MG
  6. CYMBALTA [Concomitant]
     Active Substance: DULOXETINE HYDROCHLORIDE
     Indication: FIBROMYALGIA
     Dosage: 90 MG
  7. FARXIGA [Concomitant]
     Active Substance: DAPAGLIFLOZIN PROPANEDIOL
     Indication: DIABETES MELLITUS
     Dosage: 10 MG, DAILY
  8. PREDNISONE. [Concomitant]
     Active Substance: PREDNISONE
     Indication: GIANT CELL ARTERITIS
     Dosage: UNK
  9. CYMBALTA [Concomitant]
     Active Substance: DULOXETINE HYDROCHLORIDE
     Indication: NEUROPATHY PERIPHERAL
     Dosage: 120 MG
  10. OZEMPIC [Concomitant]
     Active Substance: SEMAGLUTIDE
     Indication: DIABETES MELLITUS
     Dosage: UNK

REACTIONS (16)
  - Carbon dioxide increased [Unknown]
  - Drug ineffective [Unknown]
  - Asthenia [Recovering/Resolving]
  - Arthritis [Unknown]
  - Giant cell arteritis [Unknown]
  - Diabetes mellitus [Unknown]
  - Pancreatitis chronic [Unknown]
  - Hernia [Unknown]
  - Blood pressure increased [Unknown]
  - Insomnia [Unknown]
  - Body height decreased [Unknown]
  - Weight increased [Unknown]
  - Intentional product misuse [Unknown]
  - Pyrexia [Unknown]
  - Weight fluctuation [Unknown]
  - Muscle atrophy [Unknown]

NARRATIVE: CASE EVENT DATE: 2019
